FAERS Safety Report 5657137-9 (Version None)
Quarter: 2008Q1

REPORT INFORMATION
  Report Type: 
  Country: None (occurrence: None)
  Receive Date: 20080310
  Receipt Date: 20080228
  Transmission Date: 20080703
  Serious: Yes (Other)
  Sender: FDA-Public Use
  Company Number: US-SANOFI-SYNTHELABO-A03200800794

PATIENT
  Sex: Female
  Weight: 88.5 kg

DRUGS (11)
  1. AMBIEN [Suspect]
     Indication: INSOMNIA
     Route: 048
     Dates: start: 20071201
  2. REMERON [Interacting]
     Indication: DEPRESSION
     Route: 048
     Dates: start: 20010101
  3. SEROQUEL [Interacting]
     Indication: MOOD SWINGS
     Dosage: 300 MG EVERY MORNING AND 600 MG EVERY EVENING
     Route: 048
     Dates: start: 19970101
  4. KLONOPIN [Interacting]
     Indication: POST-TRAUMATIC STRESS DISORDER
     Route: 048
     Dates: start: 19930101
  5. LYRICA [Interacting]
     Indication: FIBROMYALGIA
     Route: 048
     Dates: start: 20071001
  6. LYRICA [Interacting]
     Indication: NEURALGIA
     Route: 048
     Dates: start: 20071001
  7. NEXIUM [Concomitant]
     Indication: DRUG USE FOR UNKNOWN INDICATION
     Dosage: UNK
     Route: 048
  8. DETROL LA [Concomitant]
     Indication: DRUG USE FOR UNKNOWN INDICATION
     Dosage: UNK
     Route: 048
  9. LIPITOR [Concomitant]
     Indication: DRUG USE FOR UNKNOWN INDICATION
     Dosage: UNK
     Route: 048
  10. GLIPIZIDE [Concomitant]
     Indication: DIABETES MELLITUS
     Dosage: UNK
     Route: 048
  11. CYMBALTA [Interacting]
     Indication: DEPRESSION
     Route: 048
     Dates: start: 20070801

REACTIONS (2)
  - DRUG INTERACTION [None]
  - HALLUCINATION [None]
